FAERS Safety Report 8491027-1 (Version None)
Quarter: 2012Q3

REPORT INFORMATION
  Report Type: 
  Country: None (occurrence: None)
  Receive Date: 20120706
  Receipt Date: 20120628
  Transmission Date: 20120928
  Serious: Yes (Hospitalization)
  Sender: FDA-Public Use
  Company Number: US-BAYER-201024531NA

PATIENT
  Age: 34 Year
  Sex: Female
  Weight: 77.098 kg

DRUGS (6)
  1. YASMIN [Suspect]
     Indication: MENSTRUATION IRREGULAR
     Dosage: UNK
     Dates: start: 20090501, end: 20100501
  2. YASMIN [Suspect]
     Indication: ORAL CONTRACEPTION
     Dosage: UNK UNK, QD
     Route: 048
     Dates: start: 20051001, end: 20090601
  3. DROSPIRENONE AND ETHINYL ESTRADIOL [Suspect]
     Indication: CONTRACEPTION
     Dosage: UNK
     Dates: start: 20080801, end: 20100501
  4. IMITREX [Concomitant]
     Indication: HEADACHE
     Dosage: UNK
     Dates: start: 20051001
  5. DROSPIRENONE AND ETHINYL ESTRADIOL [Suspect]
     Indication: MENSTRUATION IRREGULAR
  6. METOPROLOL SUCCINATE [Concomitant]
     Dosage: 50 MG, UNK
     Route: 048
     Dates: start: 20100129

REACTIONS (12)
  - INJURY [None]
  - CHOLECYSTITIS CHRONIC [None]
  - PAIN [None]
  - POST CHOLECYSTECTOMY SYNDROME [None]
  - PULMONARY EMBOLISM [None]
  - GALLBLADDER PAIN [None]
  - DYSPNOEA [None]
  - PSYCHOLOGICAL TRAUMA [None]
  - GASTROINTESTINAL DISORDER [None]
  - CHEST PAIN [None]
  - ANXIETY [None]
  - ANHEDONIA [None]
